FAERS Safety Report 10985896 (Version 1)
Quarter: 2015Q2

REPORT INFORMATION
  Report Type: Spontaneous
  Country: US (occurrence: US)
  Receive Date: 20150404
  Receipt Date: 20150404
  Transmission Date: 20150821
  Serious: No
  Sender: FDA-Public Use
  Company Number: US-SA-2014SA137408

PATIENT
  Age: 58 Year
  Sex: Female

DRUGS (2)
  1. ALLEGRA-D [Suspect]
     Active Substance: FEXOFENADINE\PSEUDOEPHEDRINE
     Indication: MULTIPLE ALLERGIES
     Dosage: DOSAGE:12 HR TWICE A DAY?PRODUCT START DATE: 2 DAYS AGO
     Route: 048
  2. ALLEGRA-D [Suspect]
     Active Substance: FEXOFENADINE\PSEUDOEPHEDRINE
     Indication: NASAL CONGESTION
     Dosage: DOSAGE:12 HR TWICE A DAY?PRODUCT START DATE: 2 DAYS AGO
     Route: 048

REACTIONS (1)
  - Insomnia [Unknown]
